FAERS Safety Report 8299303-2 (Version None)
Quarter: 2012Q2

REPORT INFORMATION
  Report Type: 
  Country: None (occurrence: None)
  Receive Date: 20120419
  Receipt Date: 20120418
  Transmission Date: 20120825
  Serious: Yes (Life-Threatening, Hospitalization)
  Sender: FDA-Public Use
  Company Number: US-B.I. PHARMACEUTICALS,INC./RIDGEFIELD-2012-BP-05561BP

PATIENT
  Sex: Female
  Weight: 131.54 kg

DRUGS (12)
  1. GABAPENTIN [Concomitant]
     Indication: HEADACHE
     Dosage: 1600 MG
     Route: 048
  2. HYDROCODONE BITARTRATE AND ACETAMINOPHEN [Concomitant]
     Indication: HEADACHE
     Route: 048
  3. CELECOXIB [Concomitant]
     Indication: OSTEOARTHRITIS
     Dosage: 200 MG
     Route: 048
  4. PIOGLITAZONE HCL [Concomitant]
     Indication: DIABETES MELLITUS
     Dosage: 15 MG
     Route: 048
  5. ALPRAZOLAM [Concomitant]
     Indication: ANXIETY
     Dosage: 1 MG
     Route: 048
  6. TIZANIDINE HCL [Concomitant]
     Indication: HEADACHE
     Dosage: 4 MG
     Route: 048
  7. LISINOPRIL [Concomitant]
     Indication: HYPERTENSION
     Route: 048
  8. SIMVASTATIN [Concomitant]
     Indication: LIPIDS INCREASED
     Dosage: 40 MG
     Route: 048
  9. PRADAXA [Suspect]
     Indication: ATRIAL FIBRILLATION
     Dosage: 300 MG
     Route: 048
     Dates: start: 20120213, end: 20120221
  10. RIZATRIPTAN BENZOATE [Concomitant]
     Indication: HEADACHE
     Route: 048
  11. PROPAFENONE HCL [Suspect]
     Indication: ATRIAL FIBRILLATION
     Dosage: 650 MG
     Route: 048
  12. ZOLPIDEM TARTATE [Concomitant]
     Indication: SLEEP DISORDER
     Route: 048

REACTIONS (1)
  - RENAL FAILURE ACUTE [None]
